FAERS Safety Report 9681483 (Version 1)
Quarter: 2013Q4

REPORT INFORMATION
  Report Type: Report from Study
  Country: CA (occurrence: CA)
  Receive Date: 20131111
  Receipt Date: 20131111
  Transmission Date: 20140711
  Serious: Yes (Other)
  Sender: FDA-Public Use
  Company Number: CA-JNJFOC-20131103185

PATIENT
  Age: 52 Year
  Sex: Female
  Weight: 123.6 kg

DRUGS (9)
  1. REMICADE [Suspect]
     Indication: COLITIS ULCERATIVE
     Route: 042
     Dates: start: 20110315
  2. METFORMIN HYDROCHLORIDE [Concomitant]
     Route: 065
  3. ANUSOL HC [Concomitant]
     Route: 065
  4. MICARDIS PLUS [Concomitant]
     Dosage: 00/12.5 MG
     Route: 065
  5. CITALOPRAM HYDROBROMIDE [Concomitant]
     Route: 065
  6. ENTOCORT ENEMA [Concomitant]
     Route: 065
  7. SALOFALK [Concomitant]
     Route: 065
  8. PROCTOSEDYL [Concomitant]
     Dosage: BID AFTER BM AS NECESSARY
     Route: 065
  9. PREDNISONE [Concomitant]
     Dosage: QID, ONCE IN A WEEK AND THEN DECREASE
     Route: 065

REACTIONS (2)
  - Epistaxis [Recovered/Resolved]
  - Hypertension [Recovered/Resolved]
